FAERS Safety Report 25401350 (Version 1)
Quarter: 2025Q2

REPORT INFORMATION
  Report Type: Spontaneous
  Country: CN (occurrence: CN)
  Receive Date: 20250605
  Receipt Date: 20250605
  Transmission Date: 20250716
  Serious: Yes (Hospitalization, Other)
  Sender: VIIV
  Company Number: CN-VIIV HEALTHCARE-CN2025APC069723

PATIENT

DRUGS (3)
  1. ZIAGEN [Suspect]
     Active Substance: ABACAVIR SULFATE
     Indication: HIV infection
     Dosage: 300 MG, BID
     Route: 048
     Dates: start: 20250328, end: 20250503
  2. LAMIVUDINE [Suspect]
     Active Substance: LAMIVUDINE
     Indication: HIV infection
     Dosage: 150 MG, QD
     Route: 048
     Dates: start: 20250328, end: 20250503
  3. EFAVIRENZ [Suspect]
     Active Substance: EFAVIRENZ
     Indication: HIV infection
     Dosage: 400 MG, QD
     Route: 048
     Dates: start: 20250328, end: 20250503

REACTIONS (13)
  - Rash pruritic [Recovering/Resolving]
  - Rash [Recovering/Resolving]
  - Skin exfoliation [Recovering/Resolving]
  - Liver injury [Recovering/Resolving]
  - Renal impairment [Recovering/Resolving]
  - Erythema multiforme [Recovering/Resolving]
  - Nausea [Recovering/Resolving]
  - Vomiting [Recovering/Resolving]
  - Rash erythematous [Recovering/Resolving]
  - Decreased appetite [Recovering/Resolving]
  - Oral mucosal eruption [Recovering/Resolving]
  - Dermatitis [Recovering/Resolving]
  - Genital rash [Recovering/Resolving]

NARRATIVE: CASE EVENT DATE: 20250503
